FAERS Safety Report 7705232-2 (Version None)
Quarter: 2011Q3

REPORT INFORMATION
  Report Type: 
  Country: None (occurrence: None)
  Receive Date: 20110818
  Receipt Date: 20110802
  Transmission Date: 20111222
  Serious: Yes (Hospitalization, Other)
  Sender: FDA-Public Use
  Company Number: 2011MA010837

PATIENT
  Age: 32 Year
  Sex: Male

DRUGS (2)
  1. CLONAZEPAM [Concomitant]
  2. ALPRAZOLAM [Suspect]
     Indication: ANXIETY
     Dosage: PO
     Route: 048

REACTIONS (23)
  - COMMUNICATION DISORDER [None]
  - BALANCE DISORDER [None]
  - LOSS OF LIBIDO [None]
  - DRUG DEPENDENCE [None]
  - HYPOAESTHESIA [None]
  - FATIGUE [None]
  - SELF-MEDICATION [None]
  - ANGER [None]
  - BODY DYSMORPHIC DISORDER [None]
  - DRUG WITHDRAWAL SYNDROME [None]
  - INCORRECT DOSE ADMINISTERED [None]
  - EMOTIONAL DISTRESS [None]
  - AMNESIA [None]
  - HALLUCINATION, VISUAL [None]
  - INTENTIONAL SELF-INJURY [None]
  - MEMORY IMPAIRMENT [None]
  - ANHEDONIA [None]
  - HYPERSOMNIA [None]
  - RESTLESSNESS [None]
  - INSOMNIA [None]
  - ASTHENIA [None]
  - LACERATION [None]
  - ANXIETY [None]
